FAERS Safety Report 16341199 (Version 2)
Quarter: 2019Q3

REPORT INFORMATION
  Report Type: Spontaneous
  Country: US (occurrence: US)
  Receive Date: 20190522
  Receipt Date: 20190705
  Transmission Date: 20191004
  Serious: Yes (Hospitalization, Other)
  Sender: FDA-Public Use
  Company Number: US-009507513-1905USA009403

PATIENT
  Sex: Female
  Weight: 61.22 kg

DRUGS (6)
  1. JANUVIA [Suspect]
     Active Substance: SITAGLIPTIN PHOSPHATE
     Indication: TYPE 2 DIABETES MELLITUS
     Dosage: 50 MILLIGRAM, ONCE DAILY
     Route: 048
     Dates: start: 20160524
  2. GLIPIZIDE. [Concomitant]
     Active Substance: GLIPIZIDE
     Dosage: 5 MILLIGRAM, ONCE DAILY, BEFORE MEAL
     Route: 048
  3. PRAVASTATIN. [Concomitant]
     Active Substance: PRAVASTATIN
     Indication: BLOOD CHOLESTEROL INCREASED
     Dosage: 20 MILLIGRAM, IN THE EVENING
     Route: 048
     Dates: start: 2014, end: 2018
  4. METFORMIN [Concomitant]
     Active Substance: METFORMIN HYDROCHLORIDE
     Dosage: 500 MILLIGRAM, TWICE A DAY
     Route: 048
  5. LOSARTAN. [Concomitant]
     Active Substance: LOSARTAN
     Indication: HYPERTENSION
     Dosage: 25 MILLIGRAM, ONCE DAILY
     Route: 048
     Dates: start: 2014, end: 2018
  6. CHOLECALCIFEROL [Concomitant]
     Active Substance: CHOLECALCIFEROL
     Indication: VITAMIN D DEFICIENCY
     Dosage: UNK
     Dates: start: 20150625

REACTIONS (19)
  - Hyperlipidaemia [Unknown]
  - Cholelithiasis [Unknown]
  - Drug hypersensitivity [Unknown]
  - Fluid retention [Unknown]
  - Hepatic mass [Recovered/Resolved]
  - Enteritis [Unknown]
  - Constipation [Unknown]
  - Nausea [Recovered/Resolved]
  - Fatigue [Unknown]
  - Cholecystitis chronic [Unknown]
  - Pancreatic carcinoma metastatic [Recovering/Resolving]
  - Dehydration [Unknown]
  - Vomiting [Recovered/Resolved]
  - Jaundice cholestatic [Unknown]
  - Neuropathy peripheral [Recovering/Resolving]
  - Pancreatic disorder [Unknown]
  - Gallbladder adenocarcinoma [Recovered/Resolved]
  - Blood potassium decreased [Unknown]
  - Gastrooesophageal reflux disease [Unknown]

NARRATIVE: CASE EVENT DATE: 2017
